FAERS Safety Report 9392658 (Version 1)
Quarter: 2013Q3

REPORT INFORMATION
  Report Type: Spontaneous
  Country: US (occurrence: None)
  Receive Date: 20130708
  Receipt Date: 20130708
  Transmission Date: 20140515
  Serious: Yes (Hospitalization)
  Sender: FDA-Public Use
  Company Number: None

PATIENT
  Age: 65 Year
  Sex: Female
  Weight: 66.1 kg

DRUGS (2)
  1. CISPLATIN [Suspect]
     Dates: start: 20130620
  2. DOCETAXEL (TAXOTERE) [Suspect]
     Dates: start: 20130620

REACTIONS (4)
  - Chest pain [None]
  - Pain [None]
  - Culture urine positive [None]
  - Escherichia infection [None]
